FAERS Safety Report 18300248 (Version 1)
Quarter: 2020Q3

REPORT INFORMATION
  Report Type: Spontaneous
  Country: US (occurrence: US)
  Receive Date: 20200922
  Receipt Date: 20200922
  Transmission Date: 20201103
  Serious: Yes (Other)
  Sender: FDA-Public Use
  Company Number: None

PATIENT
  Age: 61 Year
  Sex: Female
  Weight: 83 kg

DRUGS (2)
  1. CLOFAZAMINE [Concomitant]
     Active Substance: CLOFAZIMINE
     Dates: start: 20200101, end: 20200917
  2. CLOFAZIMINE [Suspect]
     Active Substance: CLOFAZIMINE
     Indication: MYCOBACTERIUM AVIUM COMPLEX INFECTION
     Route: 048
     Dates: start: 20200101, end: 20200917

REACTIONS (12)
  - Abdominal pain upper [None]
  - Pyrexia [None]
  - Nausea [None]
  - Aspartate aminotransferase increased [None]
  - Skin hyperpigmentation [None]
  - Therapy interrupted [None]
  - Muscle spasms [None]
  - Taste disorder [None]
  - Vomiting [None]
  - Chromaturia [None]
  - Liver function test increased [None]
  - Alanine aminotransferase increased [None]

NARRATIVE: CASE EVENT DATE: 20200917
